FAERS Safety Report 7618474-1 (Version None)
Quarter: 2011Q3

REPORT INFORMATION
  Report Type: 
  Country: None (occurrence: None)
  Receive Date: 20110718
  Receipt Date: 20110712
  Transmission Date: 20111222
  Serious: Yes (Disabling, Other)
  Sender: FDA-Public Use
  Company Number: US-MERCK-1105USA02800

PATIENT
  Age: 66 Year
  Sex: Female
  Weight: 51 kg

DRUGS (1)
  1. FOSAMAX [Suspect]
     Indication: OSTEOPOROSIS
     Route: 048
     Dates: start: 19910101

REACTIONS (6)
  - SKIN DISORDER [None]
  - SKIN EXFOLIATION [None]
  - OSTEONECROSIS [None]
  - BONE DISORDER [None]
  - SKIN EROSION [None]
  - SKIN INDURATION [None]
